FAERS Safety Report 7178078-4 (Version None)
Quarter: 2010Q4

REPORT INFORMATION
  Report Type: 
  Country: None (occurrence: None)
  Receive Date: 20101220
  Receipt Date: 20101217
  Transmission Date: 20110411
  Serious: Yes (Hospitalization)
  Sender: FDA-Public Use
  Company Number: A0888805A

PATIENT
  Age: 39 Year
  Sex: Female

DRUGS (4)
  1. ADVAIR [Suspect]
     Indication: ASTHMA
     Route: 055
     Dates: start: 20100601, end: 20100731
  2. SEREVENT [Suspect]
     Indication: ASTHMA
     Dosage: 1PUFF PER DAY
     Route: 055
     Dates: start: 20101012
  3. PREVACID [Concomitant]
  4. ELAVIL [Concomitant]

REACTIONS (12)
  - COUGH [None]
  - DEVICE MALFUNCTION [None]
  - DRUG INEFFECTIVE [None]
  - DYSPNOEA [None]
  - KIDNEY INFECTION [None]
  - PNEUMONIA [None]
  - PRODUCT QUALITY ISSUE [None]
  - PYREXIA [None]
  - SINUSITIS [None]
  - STAPHYLOCOCCAL INFECTION [None]
  - TRISMUS [None]
  - VOMITING [None]
